FAERS Safety Report 11206049 (Version 2)
Quarter: 2015Q3

REPORT INFORMATION
  Report Type: Spontaneous
  Country: US (occurrence: US)
  Receive Date: 20150622
  Receipt Date: 20150722
  Transmission Date: 20151125
  Serious: Yes (Other)
  Sender: FDA-Public Use
  Company Number: US-BAYER-2015-361657

PATIENT
  Age: 54 Year
  Sex: Female

DRUGS (2)
  1. ULTRAVIST [Suspect]
     Active Substance: IOPROMIDE
     Indication: COMPUTERISED TOMOGRAM THORAX
     Dosage: 79.70 ML, ONCE
     Dates: start: 20150618, end: 20150618
  2. ULTRAVIST [Suspect]
     Active Substance: IOPROMIDE
     Indication: CHEST PAIN

REACTIONS (3)
  - Nausea [None]
  - Vomiting [None]
  - Pharyngeal oedema [None]

NARRATIVE: CASE EVENT DATE: 20150618
